FAERS Safety Report 6795408-3 (Version None)
Quarter: 2010Q2

REPORT INFORMATION
  Report Type: 
  Country: None (occurrence: None)
  Receive Date: 20100624
  Receipt Date: 20100624
  Transmission Date: 20101027
  Serious: Yes (Other)
  Sender: FDA-Public Use
  Company Number: None

PATIENT
  Age: 53 Year
  Sex: Female
  Weight: 88.905 kg

DRUGS (4)
  1. VIVELLE-DOT [Suspect]
     Indication: HYSTERECTOMY
     Dosage: 0.05 2X WEEKLY
     Dates: start: 20100519, end: 20100522
  2. VIVELLE-DOT [Suspect]
     Indication: MENOPAUSE
     Dosage: 0.05 2X WEEKLY
     Dates: start: 20100519, end: 20100522
  3. VIVELLE-DOT [Suspect]
     Indication: HYSTERECTOMY
     Dosage: 0.05 2X WEEKLY
     Dates: start: 20100525, end: 20100526
  4. VIVELLE-DOT [Suspect]
     Indication: MENOPAUSE
     Dosage: 0.05 2X WEEKLY
     Dates: start: 20100525, end: 20100526

REACTIONS (3)
  - ABDOMINAL PAIN UPPER [None]
  - BACK PAIN [None]
  - MALAISE [None]
